FAERS Safety Report 8182065-7 (Version None)
Quarter: 2012Q1

REPORT INFORMATION
  Report Type: 
  Country: None (occurrence: None)
  Receive Date: 20120302
  Receipt Date: 20120223
  Transmission Date: 20120608
  Serious: Yes (Other)
  Sender: FDA-Public Use
  Company Number: GB-MERCK-1202USA04086

PATIENT
  Sex: Male

DRUGS (4)
  1. DAUNORUBICIN [Concomitant]
     Route: 065
  2. ASPARAGINASE (AS DRUG) [Suspect]
     Dosage: 1000 UNITS/M2 ON DAYS 4 AND 18
     Route: 030
  3. VINCRISTINE SULFATE [Concomitant]
     Route: 065
  4. DECADRON [Suspect]
     Route: 048

REACTIONS (3)
  - HYPERTRIGLYCERIDAEMIA [None]
  - OEDEMA PERIPHERAL [None]
  - HYPONATRAEMIA [None]
